FAERS Safety Report 26002315 (Version 1)
Quarter: 2025Q4

REPORT INFORMATION
  Report Type: Spontaneous
  Country: CN (occurrence: CN)
  Receive Date: 20251105
  Receipt Date: 20251105
  Transmission Date: 20260117
  Serious: Yes (Other)
  Sender: ABBVIE
  Company Number: CN-ABBVIE-6531163

PATIENT
  Age: 49 Year
  Sex: Male

DRUGS (1)
  1. UPADACITINIB [Suspect]
     Active Substance: UPADACITINIB
     Indication: Vitiligo
     Route: 048

REACTIONS (2)
  - Acute promyelocytic leukaemia [Unknown]
  - Peripheral vein thrombosis [Unknown]
